FAERS Safety Report 6040083-9 (Version None)
Quarter: 2009Q1

REPORT INFORMATION
  Report Type: 
  Country: None (occurrence: None)
  Receive Date: 20090116
  Receipt Date: 20071206
  Transmission Date: 20090719
  Serious: Yes (Hospitalization, Other)
  Sender: FDA-Public Use
  Company Number: US-BRISTOL-MYERS SQUIBB COMPANY-14005904

PATIENT
  Age: 59 Year
  Sex: Female
  Weight: 104 kg

DRUGS (10)
  1. ABILIFY [Suspect]
     Indication: POST-TRAUMATIC STRESS DISORDER
     Dosage: SECOND DOSE TAKEN ON 01-DEC-2007
     Route: 048
     Dates: start: 20071130
  2. LORAZEPAM [Concomitant]
  3. AMBIEN [Concomitant]
  4. CRESTOR [Concomitant]
  5. SPIRONOLACTONE [Concomitant]
  6. ASPIRIN [Concomitant]
  7. CLONAZEPAM [Concomitant]
  8. SEROQUEL [Concomitant]
  9. NEURONTIN [Concomitant]
  10. CYMBALTA [Concomitant]

REACTIONS (2)
  - INSOMNIA [None]
  - PSYCHOMOTOR HYPERACTIVITY [None]
